FAERS Safety Report 25492867 (Version 4)
Quarter: 2025Q3

REPORT INFORMATION
  Report Type: Spontaneous
  Country: JP (occurrence: JP)
  Receive Date: 20250630
  Receipt Date: 20250903
  Transmission Date: 20251021
  Serious: Yes (Hospitalization, Other)
  Sender: ASTELLAS
  Company Number: JP-ASTELLAS-2025-AER-012002

PATIENT
  Age: 80 Year
  Sex: Male
  Weight: 57 kg

DRUGS (10)
  1. VYLOY [Suspect]
     Active Substance: ZOLBETUXIMAB-CLZB
     Indication: Gastric cancer
     Route: 042
     Dates: start: 20240821
  2. VYLOY [Suspect]
     Active Substance: ZOLBETUXIMAB-CLZB
     Dosage: 600MG/M2
     Route: 042
     Dates: start: 20240913, end: 20241220
  3. CAPECITABINE [Suspect]
     Active Substance: CAPECITABINE
     Indication: Gastric cancer
     Route: 048
     Dates: start: 20240821, end: 20250103
  4. OXALIPLATIN [Concomitant]
     Active Substance: OXALIPLATIN
     Indication: Gastric cancer
     Route: 042
     Dates: start: 20240821, end: 20241220
  5. DEXAMETHASONE SODIUM PHOSPHATE [Concomitant]
     Active Substance: DEXAMETHASONE SODIUM PHOSPHATE
     Indication: Gastric cancer
     Route: 042
     Dates: start: 20240821, end: 20241220
  6. GRANISETRON [Concomitant]
     Active Substance: GRANISETRON
     Indication: Gastric cancer
     Route: 042
     Dates: start: 20240821, end: 20241220
  7. Azilsartan tablet [Concomitant]
     Indication: Hypertension
     Route: 048
  8. AMLODIPINE [Concomitant]
     Active Substance: AMLODIPINE BESYLATE
     Indication: Hypertension
     Route: 048
  9. Benzbromarone tablet [Concomitant]
     Indication: Hyperuricaemia
     Route: 048
  10. Esomeprazole Capsules [Concomitant]
     Indication: Gastric cancer
     Route: 048

REACTIONS (1)
  - Interstitial lung disease [Recovering/Resolving]

NARRATIVE: CASE EVENT DATE: 20250108
